FAERS Safety Report 8199682-0 (Version None)
Quarter: 2012Q1

REPORT INFORMATION
  Report Type: 
  Country: None (occurrence: None)
  Receive Date: 20120311
  Receipt Date: 20120229
  Transmission Date: 20120608
  Serious: Yes (Hospitalization)
  Sender: FDA-Public Use
  Company Number: US-ASTRAZENECA-2011SE71146

PATIENT
  Age: 85 Year
  Sex: Female

DRUGS (3)
  1. ALLOPURINOL [Concomitant]
  2. OLAVIX [Concomitant]
  3. NEXIUM [Suspect]
     Indication: GASTROOESOPHAGEAL REFLUX DISEASE
     Route: 048

REACTIONS (3)
  - OFF LABEL USE [None]
  - DYSPHAGIA [None]
  - CEREBROVASCULAR ACCIDENT [None]
